FAERS Safety Report 14782161 (Version 1)
Quarter: 2018Q2

REPORT INFORMATION
  Report Type: Spontaneous
  Country: FR (occurrence: FR)
  Receive Date: 20180420
  Receipt Date: 20180420
  Transmission Date: 20180711
  Serious: Yes (Life-Threatening)
  Sender: FDA-Public Use
  Company Number: FR-TEVA-2018-FR-883828

PATIENT
  Age: 62 Year
  Sex: Female
  Weight: 71 kg

DRUGS (3)
  1. CELOCURINE [Suspect]
     Active Substance: SUCCINYLCHOLINE CHLORIDE
     Route: 042
  2. REMIFENTANYL BASE [Suspect]
     Active Substance: REMIFENTANIL
     Route: 042
  3. PROPOFOL. [Suspect]
     Active Substance: PROPOFOL
     Route: 042

REACTIONS (1)
  - Anaphylactic shock [Recovered/Resolved]
